FAERS Safety Report 7774799-0 (Version None)
Quarter: 2011Q3

REPORT INFORMATION
  Report Type: 
  Country: None (occurrence: None)
  Receive Date: 20110923
  Receipt Date: 20110920
  Transmission Date: 20111222
  Serious: Yes (Death, Hospitalization, Congenital Anomaly, Other)
  Sender: FDA-Public Use
  Company Number: US-PFIZER INC-2010128177

PATIENT
  Sex: Female
  Weight: 2.9 kg

DRUGS (10)
  1. ZOLOFT [Suspect]
     Dosage: 50 MG DAILY
     Route: 064
     Dates: start: 20080819
  2. ZOLOFT [Suspect]
     Indication: DEPRESSION
     Dosage: 50 MG, UNK
     Route: 064
  3. ZOLOFT [Suspect]
     Dosage: 200 MG DAILY
     Route: 064
  4. AMOXICILLIN [Concomitant]
     Dosage: 875 MG, UNK
     Route: 064
     Dates: start: 20080101
  5. CALCIUM [Concomitant]
     Dosage: 500 MG, UNK
     Route: 064
  6. IMODIUM MULTI-SYMPTOM RELIEF [Concomitant]
     Dosage: UNK
     Route: 064
  7. FOLIC ACID [Concomitant]
     Dosage: 1 MG, 3X/DAY
     Route: 064
     Dates: start: 20080101
  8. PRENATAL VITAMINS [Concomitant]
     Dosage: UNK
     Route: 064
  9. CLARITIN [Concomitant]
     Dosage: UNK
     Route: 064
  10. FOLIC ACID [Concomitant]
     Dosage: 1 MG, 4X/DAY
     Dates: start: 20080101

REACTIONS (20)
  - CONGENITAL GREAT VESSEL ANOMALY [None]
  - FAILURE TO THRIVE [None]
  - ANOMALOUS PULMONARY VENOUS CONNECTION [None]
  - HAEMOLYTIC ANAEMIA [None]
  - RECTAL PROLAPSE [None]
  - DILATATION VENTRICULAR [None]
  - MITRAL VALVE INCOMPETENCE [None]
  - JAUNDICE NEONATAL [None]
  - CONGENITAL PULMONARY VALVE ATRESIA [None]
  - PULMONARY HYPERTENSION [None]
  - GASTROOESOPHAGEAL REFLUX DISEASE [None]
  - ANKYLOGLOSSIA CONGENITAL [None]
  - RESPIRATORY FAILURE [None]
  - MATERNAL EXPOSURE DURING PREGNANCY [None]
  - HEART DISEASE CONGENITAL [None]
  - RESPIRATORY DISTRESS [None]
  - COR TRIATRIATUM [None]
  - ATRIAL SEPTAL DEFECT [None]
  - TRICUSPID VALVE INCOMPETENCE [None]
  - PULMONARY VENO-OCCLUSIVE DISEASE [None]
